FAERS Safety Report 9357354 (Version 1)
Quarter: 2013Q2

REPORT INFORMATION
  Report Type: Spontaneous
  Country: US (occurrence: None)
  Receive Date: 20130617
  Receipt Date: 20130617
  Transmission Date: 20140414
  Serious: Yes (Other)
  Sender: FDA-Public Use
  Company Number: 1747265

PATIENT
  Age: 5 Year
  Sex: Male

DRUGS (1)
  1. DEXTROSE [Suspect]
     Indication: HYPOGLYCAEMIA
     Route: 042

REACTIONS (2)
  - Ventricular arrhythmia [None]
  - Electrolyte imbalance [None]
